FAERS Safety Report 9129356 (Version 1)
Quarter: 2013Q1

REPORT INFORMATION
  Report Type: Spontaneous
  Country: US (occurrence: US)
  Receive Date: 20130228
  Receipt Date: 20130228
  Transmission Date: 20140127
  Serious: No
  Sender: FDA-Public Use
  Company Number: US-ABBOTT-12P-163-1009716-00

PATIENT
  Sex: Male
  Weight: 113.5 kg

DRUGS (5)
  1. ANDROGEL 1.62% [Suspect]
     Indication: BLOOD TESTOSTERONE DECREASED
     Dosage: 2 PUMPS PER DAY
     Route: 061
     Dates: start: 201203, end: 201208
  2. ANDROGEL 1.62% [Suspect]
     Dosage: 4 PUMPS PER DAY
     Route: 061
     Dates: start: 201208
  3. DIOVAN COMP [Concomitant]
     Indication: HYPERTENSION
  4. CRESTOR [Concomitant]
     Indication: BLOOD CHOLESTEROL INCREASED
  5. PRISTIQ [Concomitant]
     Indication: DEPRESSION

REACTIONS (2)
  - Blood testosterone decreased [Unknown]
  - Drug ineffective [Unknown]
